FAERS Safety Report 8243242 (Version 4)
Quarter: 2013Q4

REPORT INFORMATION
  Report Type: Report from Study
  Country: US (occurrence: US)
  Receive Date: 20111114
  Receipt Date: 20131023
  Transmission Date: 20140711
  Serious: Yes (Hospitalization, Other)
  Sender: FDA-Public Use
  Company Number: US-ACTELION-A-US2011-56899

PATIENT
  Age: 65 Year
  Sex: Female

DRUGS (2)
  1. TRACLEER [Suspect]
     Indication: PULMONARY ARTERIAL HYPERTENSION
     Dosage: UNK MG, UNK
     Route: 048
     Dates: start: 2009
  2. REVATIO [Concomitant]

REACTIONS (11)
  - Pneumonia [Unknown]
  - Type 2 diabetes mellitus [Unknown]
  - Thirst [Unknown]
  - Weight increased [Unknown]
  - Local swelling [Unknown]
  - Oxygen saturation decreased [Unknown]
  - Asthenia [Unknown]
  - Sleep apnoea syndrome [Unknown]
  - Condition aggravated [Unknown]
  - Skin infection [Unknown]
  - Panic attack [Unknown]
